FAERS Safety Report 16593681 (Version 1)
Quarter: 2019Q3

REPORT INFORMATION
  Report Type: Report from Study
  Country: US (occurrence: US)
  Receive Date: 20190718
  Receipt Date: 20190718
  Transmission Date: 20191004
  Serious: Yes (Hospitalization)
  Sender: FDA-Public Use
  Company Number: US-SA-2018SA195316

PATIENT
  Age: 74 Year
  Sex: Male

DRUGS (1)
  1. INSULIN GLARGINE [Suspect]
     Active Substance: INSULIN GLARGINE
     Indication: DIABETES MELLITUS
     Dosage: 22 U, BID
     Route: 058

REACTIONS (4)
  - Cardiac disorder [Unknown]
  - Cerebrovascular accident [Unknown]
  - Sleep apnoea syndrome [Unknown]
  - Inappropriate schedule of product administration [Unknown]
